FAERS Safety Report 12138890 (Version 2)
Quarter: 2017Q2

REPORT INFORMATION
  Report Type: Spontaneous
  Country: US (occurrence: US)
  Receive Date: 20160302
  Receipt Date: 20170621
  Transmission Date: 20170829
  Serious: No
  Sender: FDA-Public Use
  Company Number: US-ACTELION PHARMACEUTICALS US, INC.-A-NJ2014-97799

PATIENT
  Age: 75 Year
  Sex: Male
  Weight: 103.4 kg

DRUGS (2)
  1. OPSUMIT [Suspect]
     Active Substance: MACITENTAN
     Indication: PULMONARY ARTERIAL HYPERTENSION
     Dosage: 10 MG, QD
     Route: 048
     Dates: start: 20140226, end: 201705
  2. RIOCIGUAT [Concomitant]
     Active Substance: RIOCIGUAT

REACTIONS (6)
  - Nausea [Unknown]
  - Drug dose omission [Unknown]
  - Constipation [Unknown]
  - Weight decreased [Unknown]
  - Fluid retention [Not Recovered/Not Resolved]
  - Decreased appetite [Unknown]
